FAERS Safety Report 11345312 (Version 1)
Quarter: 2015Q3

REPORT INFORMATION
  Report Type: Report from Study
  Country: US (occurrence: US)
  Receive Date: 20150806
  Receipt Date: 20150806
  Transmission Date: 20151125
  Serious: No
  Sender: FDA-Public Use
  Company Number: US-ABBVIE-15P-163-1409675-00

PATIENT
  Age: 60 Year
  Sex: Male
  Weight: 98.97 kg

DRUGS (9)
  1. METOPROLOL [Concomitant]
     Active Substance: METOPROLOL
     Indication: CARDIAC DISORDER
  2. OMEPRAZOLE (NON-ABBVIE) [Concomitant]
     Indication: GASTROOESOPHAGEAL REFLUX DISEASE
  3. ASPIRIN (NON-ABBVIE) [Concomitant]
     Indication: CARDIAC DISORDER
  4. METHOCARBOMAL (NON-ABBVIE) [Concomitant]
     Indication: ARTHRITIS
  5. FOLIC ACID (NON-ABBVIE) [Concomitant]
     Indication: LIVER DISORDER
  6. MULTIVITAMIN (NON-ABBVIE) [Concomitant]
     Indication: VITAMIN SUPPLEMENTATION
  7. VIEKIRA PAK [Suspect]
     Active Substance: DASABUVIR\OMBITASVIR\PARITAPREVIR\RITONAVIR
     Indication: HEPATITIS C
     Route: 048
     Dates: start: 20150603
  8. LISINOPRIL. [Concomitant]
     Active Substance: LISINOPRIL
     Indication: HYPERTENSION
  9. LIALDA (NON-ABBVIE) [Concomitant]
     Indication: COLITIS

REACTIONS (5)
  - Fatigue [Recovered/Resolved]
  - Hiccups [Recovered/Resolved]
  - Muscle spasms [Recovered/Resolved]
  - Headache [Recovered/Resolved]
  - Pyrexia [Recovered/Resolved]

NARRATIVE: CASE EVENT DATE: 20150603
